FAERS Safety Report 24057128 (Version 2)
Quarter: 2024Q3

REPORT INFORMATION
  Report Type: Spontaneous
  Country: GB (occurrence: GB)
  Receive Date: 20240706
  Receipt Date: 20240817
  Transmission Date: 20241016
  Serious: Yes (Disabling)
  Sender: TEVA
  Company Number: GB-MHRA-TPP36064774C23315082YC1719488124401

PATIENT
  Age: 89 Year
  Sex: Female
  Weight: 55 kg

DRUGS (12)
  1. PRIMIDONE [Suspect]
     Active Substance: PRIMIDONE
     Dosage: WEEK 1 AND 2: HALF A TABLET EACH DAY WEEK 3 A...
     Route: 048
     Dates: start: 20240416
  2. METFORMIN [Concomitant]
     Active Substance: METFORMIN HYDROCHLORIDE
     Dosage: ONE DAILY WITH BREAKFAST AND ONE WITH EV...
     Dates: start: 20220516
  3. AMLODIPINE [Concomitant]
     Active Substance: AMLODIPINE BESYLATE
     Indication: Blood pressure increased
     Dates: start: 20240120
  4. ACETAMINOPHEN [Concomitant]
     Active Substance: ACETAMINOPHEN
     Dosage: WHEN REQUIRED
     Dates: start: 20220516
  5. POLYETHYLENE GLYCOL 3350\POTASSIUM CHLORIDE\SODIUM BICARBONATE\SODIUM [Concomitant]
     Active Substance: POLYETHYLENE GLYCOL 3350\POTASSIUM CHLORIDE\SODIUM BICARBONATE\SODIUM CHLORIDE
     Dosage: ONE OR TWO DAILY, ORANGE
     Dates: start: 20220516
  6. DAPAGLIFLOZIN [Concomitant]
     Active Substance: DAPAGLIFLOZIN
     Indication: Glucose urine
     Dates: start: 20230928
  7. AMITRIPTYLINE [Suspect]
     Active Substance: AMITRIPTYLINE
     Dosage: AT NIGHT AS DIRECTED (BLUE ROU..., AMITRIPTYLINE HYDROCHLORIDE
     Route: 065
     Dates: start: 20220516
  8. POTASSIUM BICARBONATE\SODIUM ALGINATE [Concomitant]
     Active Substance: POTASSIUM BICARBONATE\SODIUM ALGINATE
     Dosage: WHEN REQUIRED
     Dates: start: 20220809
  9. DIHYDROCODEINE [Concomitant]
     Active Substance: DIHYDROCODEINE
     Dosage: ONE OR TWO AT NIGHT (WHITE CAPSULE SHAPED DHC 6...
     Dates: start: 20220516
  10. MOVELAT [Concomitant]
     Dosage: APPLY AS REQUIRED
     Dates: start: 20220516
  11. MEMANTINE [Suspect]
     Active Substance: MEMANTINE
     Indication: Amnesia
     Dosage: EACH NIGHT TIME (FOR MEMORY) (WHITE ...
     Route: 065
     Dates: start: 20231127
  12. LEVOTHYROXINE [Concomitant]
     Active Substance: LEVOTHYROXINE\LEVOTHYROXINE SODIUM
     Indication: Ill-defined disorder
     Dosage: (WHITE R...
     Dates: start: 20220516

REACTIONS (2)
  - Nausea [Unknown]
  - Dizziness [Unknown]

NARRATIVE: CASE EVENT DATE: 20240606
